FAERS Safety Report 8690829 (Version 2)
Quarter: 2012Q4

REPORT INFORMATION
  Report Type: 
  Country: US (occurrence: US)
  Receive Date: 20120729
  Receipt Date: 20121024
  Transmission Date: 20130627
  Serious: Yes (Hospitalization, Disabling, Other)
  Sender: FDA-Public Use
  Company Number: US-009507513-1207USA005744

PATIENT

DRUGS (5)
  1. FOSAMAX [Suspect]
     Indication: OSTEOPENIA
     Dosage: 10 mg, qd
     Route: 048
     Dates: start: 20000113
  2. FOSAMAX [Suspect]
     Dosage: 70 mg, UNK
     Route: 048
     Dates: start: 200012, end: 20080204
  3. FOSAMAX [Suspect]
     Indication: OSTEOPENIA
     Dosage: 70 mg, UNK
     Route: 048
     Dates: start: 20080306, end: 20100804
  4. ALENDRONATE SODIUM [Suspect]
     Dosage: 70 mg, UNK
     Route: 048
  5. PRILOSEC [Concomitant]
     Dosage: UNK
     Dates: start: 1997

REACTIONS (25)
  - Femur fracture [Not Recovered/Not Resolved]
  - Intramedullary rod insertion [Unknown]
  - Low turnover osteopathy [Not Recovered/Not Resolved]
  - Breast lump removal [Unknown]
  - Tonsillectomy [Unknown]
  - Hypercholesterolaemia [Unknown]
  - Exostosis of jaw [Unknown]
  - Oral surgery [Unknown]
  - Tooth extraction [Unknown]
  - Meniere^s disease [Unknown]
  - Cystitis interstitial [Unknown]
  - Night sweats [Unknown]
  - Irritable bowel syndrome [Unknown]
  - Anaemia [Unknown]
  - Leukocytosis [Unknown]
  - Depression [Unknown]
  - Spinal osteoarthritis [Unknown]
  - Bursitis [Unknown]
  - Metrorrhagia [Unknown]
  - Spondylolisthesis [Unknown]
  - Osteoporosis [Unknown]
  - Pain in extremity [Not Recovered/Not Resolved]
  - Gastritis [Unknown]
  - Duodenal ulcer [Unknown]
  - Gastrooesophageal reflux disease [Unknown]
